FAERS Safety Report 6080962-X (Version None)
Quarter: 2009Q1

REPORT INFORMATION
  Report Type: 
  Country: None (occurrence: None)
  Receive Date: 20090217
  Receipt Date: 20090211
  Transmission Date: 20090719
  Serious: No
  Sender: FDA-Public Use
  Company Number: US-B.I. PHARMACEUTICALS,INC./RIDGEFIELD-2009-BP-00991BP

PATIENT
  Sex: Female

DRUGS (8)
  1. MICARDIS [Suspect]
     Indication: HYPERTENSION
     Dosage: 20MG
     Route: 048
     Dates: start: 20090126
  2. ATENOLOL [Concomitant]
     Indication: HYPERTENSION
     Dosage: 100MG
  3. SYNTHROID [Concomitant]
     Dosage: .88MG
  4. ESTRADIOL [Concomitant]
     Dosage: 2MG
  5. ASPIRIN [Concomitant]
     Dosage: .81MG
  6. VITAMIN D [Concomitant]
  7. VITAMIN B-12 [Concomitant]
     Route: 030
  8. FISH OIL [Concomitant]
     Dosage: 2400MG

REACTIONS (1)
  - BLOOD PRESSURE INADEQUATELY CONTROLLED [None]
